FAERS Safety Report 5990123 (Version 3)
Quarter: 2020Q3

REPORT INFORMATION
  Report Type: Report from Study
  Country: DE (occurrence: DE)
  Receive Date: 20060224
  Receipt Date: 20060328
  Transmission Date: 20201104
  Serious: Yes (Hospitalization)
  Sender: FDA-Public Use
  Company Number: DE-JNJFOC-20050805689

PATIENT
  Age: 68 Year
  Sex: Female

DRUGS (40)
  1. PANCREATIN [Concomitant]
     Active Substance: PANCRELIPASE
     Route: 048
  2. INFLIXIMAB [Suspect]
     Active Substance: INFLIXIMAB
     Route: 042
  3. INFLIXIMAB [Suspect]
     Active Substance: INFLIXIMAB
     Route: 042
  4. GEMCITABINE. [Concomitant]
     Active Substance: GEMCITABINE
  5. MULTIVITAMINS [Concomitant]
     Active Substance: VITAMINS
     Route: 048
  6. AQUAPHOR [Concomitant]
     Route: 048
  7. POTASSIUM IODIDE. [Concomitant]
     Active Substance: POTASSIUM IODIDE
     Route: 048
  8. INFLIXIMAB [Suspect]
     Active Substance: INFLIXIMAB
     Route: 042
  9. INFLIXIMAB [Suspect]
     Active Substance: INFLIXIMAB
     Route: 042
  10. INFLIXIMAB [Suspect]
     Active Substance: INFLIXIMAB
     Route: 042
  11. TRACE ELEMENTS [Concomitant]
     Active Substance: UNSPECIFIED INGREDIENT
     Route: 048
  12. MULTIVITAMINS [Concomitant]
     Active Substance: VITAMINS
     Route: 048
  13. MULTIVITAMINS [Concomitant]
     Active Substance: VITAMINS
     Route: 048
  14. AMITRIPTYLINE [Concomitant]
     Active Substance: AMITRIPTYLINE
     Route: 048
  15. CODEINE [Concomitant]
     Active Substance: CODEINE
     Route: 048
  16. METFORMIN [Concomitant]
     Active Substance: METFORMIN HYDROCHLORIDE
  17. NORVASC [Concomitant]
     Active Substance: AMLODIPINE BESYLATE
     Route: 048
  18. MULTIVITAMINS [Concomitant]
     Active Substance: VITAMINS
     Route: 048
  19. TILIDINE [Concomitant]
     Active Substance: TILIDINE
     Route: 048
  20. METAMIZOL [Concomitant]
     Route: 048
  21. TORSEMIDE. [Concomitant]
     Active Substance: TORSEMIDE
     Route: 048
  22. SPIRONOLACTONE. [Concomitant]
     Active Substance: SPIRONOLACTONE
     Route: 048
  23. PETROLATUM. [Concomitant]
     Active Substance: PETROLATUM
     Route: 048
  24. VITAMIN B12 [Concomitant]
     Active Substance: CYANOCOBALAMIN
  25. IDEOS KT [Concomitant]
     Route: 048
  26. INFLIXIMAB [Suspect]
     Active Substance: INFLIXIMAB
     Route: 042
  27. INFLIXIMAB [Suspect]
     Active Substance: INFLIXIMAB
     Indication: CACHEXIA
     Route: 042
  28. PARAFFIN [Concomitant]
     Active Substance: PARAFFIN
     Route: 048
  29. LEVOTHYROXINE SODIUM. [Concomitant]
     Active Substance: LEVOTHYROXINE SODIUM
     Route: 048
  30. GEMCITABINE. [Concomitant]
     Active Substance: GEMCITABINE
     Indication: CACHEXIA
  31. MULTIVITAMINS [Concomitant]
     Active Substance: VITAMINS
     Route: 048
  32. AQUAPHOR [Concomitant]
     Route: 048
  33. MULTIVITAMINS [Concomitant]
     Active Substance: VITAMINS
     Route: 048
  34. INFLIXIMAB [Suspect]
     Active Substance: INFLIXIMAB
     Route: 042
  35. INFLIXIMAB [Suspect]
     Active Substance: INFLIXIMAB
     Route: 042
  36. INFLIXIMAB [Suspect]
     Active Substance: INFLIXIMAB
     Route: 042
  37. MULTIVITAMINS [Concomitant]
     Active Substance: VITAMINS
     Route: 048
  38. MULTIVITAMINS [Concomitant]
     Active Substance: VITAMINS
     Route: 048
  39. SELENIUM SULFIDE. [Concomitant]
     Active Substance: SELENIUM SULFIDE
     Route: 048
  40. ERYTHROPOIETIN [Concomitant]
     Active Substance: ERYTHROPOIETIN
     Route: 058

REACTIONS (6)
  - Ascites [Unknown]
  - Hyperbilirubinaemia [Recovered/Resolved]
  - Cholangitis [Recovered/Resolved]
  - Oedema [Unknown]
  - Abdominal pain [Unknown]
  - Vomiting [Unknown]

NARRATIVE: CASE EVENT DATE: 20040908
